FAERS Safety Report 10152151 (Version 2)
Quarter: 2014Q2

REPORT INFORMATION
  Report Type: Report from Study
  Country: DE (occurrence: DE)
  Receive Date: 20140505
  Receipt Date: 20140505
  Transmission Date: 20141212
  Serious: Yes (Hospitalization)
  Sender: FDA-Public Use
  Company Number: DE-AMGEN-DEUCT2014023208

PATIENT
  Age: 74 Year
  Sex: Male

DRUGS (12)
  1. ETANERCEPT [Suspect]
     Indication: RHEUMATOID ARTHRITIS
     Dosage: 50 MG, QWK
     Route: 065
  2. METHOTREXATE SODIUM [Concomitant]
     Dosage: 22.5 MG, WEEKLY
  3. ASS [Concomitant]
     Dosage: UNK
  4. PANTOZOL                           /01263204/ [Concomitant]
     Dosage: UNK
  5. PREDNISOLON                        /00016201/ [Concomitant]
     Dosage: UNK
  6. CALCIUM [Concomitant]
     Dosage: UNK
  7. IBUPROFEN [Concomitant]
     Dosage: UNK
  8. FOLIC ACID [Concomitant]
     Dosage: UNK
  9. RANITIDINE [Concomitant]
     Dosage: UNK
  10. VIANI [Concomitant]
     Dosage: UNK
  11. SPIRIVA [Concomitant]
     Dosage: UNK
  12. PLAVIX [Concomitant]
     Dosage: UNK

REACTIONS (3)
  - Haemoptysis [Not Recovered/Not Resolved]
  - Bronchopneumonia [Not Recovered/Not Resolved]
  - Vascular bypass dysfunction [Not Recovered/Not Resolved]
